FAERS Safety Report 16904473 (Version 1)
Quarter: 2019Q4

REPORT INFORMATION
  Report Type: Spontaneous
  Country: US (occurrence: US)
  Receive Date: 20191010
  Receipt Date: 20191010
  Transmission Date: 20200122
  Serious: No
  Sender: FDA-Public Use
  Company Number: US-FRESENIUS KABI-FK201910927

PATIENT
  Age: 8 Month
  Sex: Male
  Weight: 11.2 kg

DRUGS (1)
  1. SMOFLIPID [Suspect]
     Active Substance: FISH OIL\MEDIUM-CHAIN TRIGLYCERIDES\OLIVE OIL\SOYBEAN OIL
     Indication: PARENTERAL NUTRITION
     Dosage: UNKNOWN
     Route: 042
     Dates: start: 201801, end: 201903

REACTIONS (2)
  - Product use issue [Recovered/Resolved]
  - Cholelithiasis [Recovering/Resolving]

NARRATIVE: CASE EVENT DATE: 201801
